FAERS Safety Report 9246217 (Version 1)
Quarter: 2013Q2

REPORT INFORMATION
  Report Type: Spontaneous
  Country: FR (occurrence: FR)
  Receive Date: 20130422
  Receipt Date: 20130422
  Transmission Date: 20140414
  Serious: Yes (Life-Threatening, Other)
  Sender: FDA-Public Use
  Company Number: FR-PFIZER INC-2013120185

PATIENT
  Age: 68 Year
  Sex: Female

DRUGS (9)
  1. DALACINE [Suspect]
     Indication: OSTEITIS
     Dosage: 600 MG, 3X/DAY
     Route: 048
     Dates: start: 20130402, end: 20130403
  2. VANCOMYCIN [Concomitant]
     Indication: OSTEITIS
     Dosage: 1250 MG, 2X/DAY
     Dates: start: 20130331
  3. VANCOMYCIN [Concomitant]
     Dosage: UNK
     Dates: start: 20130402
  4. GENTAMICIN [Concomitant]
     Indication: OSTEITIS
     Dosage: UNK
     Dates: start: 20130331, end: 20130402
  5. TIENAM [Concomitant]
     Indication: OSTEITIS
     Dosage: UNK
     Route: 042
     Dates: start: 20130331, end: 20130402
  6. OFLOCET [Concomitant]
     Indication: OSTEITIS
     Dosage: UNK
     Dates: start: 201212, end: 20130331
  7. RIFADINE [Concomitant]
     Indication: OSTEITIS
     Dosage: UNK
     Dates: start: 201212, end: 20130331
  8. RIFADINE [Concomitant]
     Dosage: UNK
  9. ORBENINE [Concomitant]
     Indication: OSTEITIS
     Dosage: UNK
     Route: 042
     Dates: start: 20130402

REACTIONS (7)
  - Drug hypersensitivity [Unknown]
  - Hypotension [Recovering/Resolving]
  - Toxic skin eruption [Recovering/Resolving]
  - Atrial fibrillation [Unknown]
  - Tachycardia [Unknown]
  - Acute generalised exanthematous pustulosis [Recovering/Resolving]
  - Dermatitis exfoliative [Recovering/Resolving]
